FAERS Safety Report 4299788-2 (Version None)
Quarter: 2004Q1

REPORT INFORMATION
  Report Type: 
  Country: None (occurrence: None)
  Receive Date: 20040126
  Receipt Date: 20031118
  Transmission Date: 20041129
  Serious: No
  Sender: FDA-Public Use
  Company Number: USA031152802

PATIENT
  Age: 14 Year
  Sex: Male
  Weight: 49 kg

DRUGS (2)
  1. STRATTERA [Suspect]
     Dosage: 80 MG/DAY
     Dates: start: 20031116
  2. CONCERTA (METHYLPHENIDATE HYDROCHORIDE) [Concomitant]

REACTIONS (6)
  - ABDOMINAL PAIN UPPER [None]
  - DIZZINESS [None]
  - FATIGUE [None]
  - INSOMNIA [None]
  - INTENTIONAL OVERDOSE [None]
  - SOMNOLENCE [None]
